FAERS Safety Report 15213571 (Version 1)
Quarter: 2018Q3

REPORT INFORMATION
  Report Type: Spontaneous
  Country: ES (occurrence: ES)
  Receive Date: 20180730
  Receipt Date: 20180730
  Transmission Date: 20181010
  Serious: Yes (Hospitalization, Other)
  Sender: FDA-Public Use
  Company Number: ES-AUROBINDO-AUR-APL-2018-037842

PATIENT
  Age: 59 Year
  Sex: Female

DRUGS (6)
  1. AUGMENTINE                         /00756801/ [Interacting]
     Active Substance: AMOXICILLIN\CLAVULANATE POTASSIUM
     Indication: URINARY TRACT INFECTION BACTERIAL
     Dosage: 1 DOSAGE FORM, 8 HOUR
     Route: 042
     Dates: start: 20170811, end: 20170814
  2. CIPROFLOXACIN. [Suspect]
     Active Substance: CIPROFLOXACIN
     Indication: URINARY TRACT INFECTION BACTERIAL
     Dosage: 1 GRAM, ONCE A DAY
     Route: 048
     Dates: start: 20170815, end: 20170824
  3. CEFIXIME. [Interacting]
     Active Substance: CEFIXIME
     Indication: URINARY TRACT INFECTION BACTERIAL
     Dosage: 400 MILLIGRAM, 8 HOUR
     Route: 048
     Dates: start: 20170805, end: 20170809
  4. CEFTAZIDIME. [Concomitant]
     Active Substance: CEFTAZIDIME
     Indication: URINARY TRACT INFECTION BACTERIAL
     Dosage: 2 GRAM, ONCE A DAY
     Route: 042
     Dates: start: 20170809, end: 20170809
  5. AMPICILLIN SODIUM. [Concomitant]
     Active Substance: AMPICILLIN SODIUM
     Indication: URINARY TRACT INFECTION BACTERIAL
     Dosage: 2 GRAM, ONCE A DAY
     Route: 042
     Dates: start: 20170809, end: 20170809
  6. CEFTRIAXONE. [Concomitant]
     Active Substance: CEFTRIAXONE
     Indication: URINARY TRACT INFECTION BACTERIAL
     Dosage: 1 GRAM, ONCE A DAY
     Route: 042
     Dates: start: 20170809, end: 20170809

REACTIONS (1)
  - Clostridium difficile colitis [Recovered/Resolved]

NARRATIVE: CASE EVENT DATE: 20170831
